FAERS Safety Report 7778577-8 (Version None)
Quarter: 2011Q3

REPORT INFORMATION
  Report Type: 
  Country: None (occurrence: None)
  Receive Date: 20110926
  Receipt Date: 20110916
  Transmission Date: 20111222
  Serious: Yes (Other)
  Sender: FDA-Public Use
  Company Number: US-BAYER-2011-026668

PATIENT
  Age: 41 Year
  Sex: Female
  Weight: 68.027 kg

DRUGS (12)
  1. ASCORBIC ACID [Concomitant]
     Indication: IMMUNODEFICIENCY
     Dosage: 1 DF, QD
     Dates: start: 19990101
  2. YASMIN [Suspect]
     Indication: CONTRACEPTION
     Dosage: UNK
     Dates: start: 20030101, end: 20090101
  3. IBUPROFEN [Concomitant]
  4. TRILYTE [Concomitant]
     Dosage: UNK
     Dates: start: 20080614
  5. METHYLPREDNISOLONE [Concomitant]
     Dosage: 4 MG, UNK
     Dates: start: 20080707
  6. TRIMETHOPRIM [Concomitant]
     Dosage: UNK
     Dates: start: 20080724
  7. SYMAX-SL [Concomitant]
     Dosage: 0.125 MG, UNK
     Dates: start: 20080724
  8. CEPHALEXIN [Concomitant]
     Dosage: 500 MG, UNK
     Dates: start: 20080707
  9. SULFAMETHOXAZOLE [Concomitant]
     Dosage: UNK
     Dates: start: 20080724
  10. TYLENOL-500 [Concomitant]
     Indication: PREMENSTRUAL SYNDROME
  11. VITAMIN TAB [Concomitant]
     Indication: IMMUNODEFICIENCY
     Dosage: 1 DF, QD
     Dates: start: 20000101
  12. YAZ [Suspect]
     Indication: CONTRACEPTION
     Dosage: UNK
     Route: 048
     Dates: start: 20030101, end: 20090101

REACTIONS (9)
  - GALLBLADDER DISORDER [None]
  - DIZZINESS [None]
  - INJURY [None]
  - MENTAL DISORDER [None]
  - CHOLECYSTITIS CHRONIC [None]
  - PAIN [None]
  - CHOLELITHIASIS [None]
  - EMOTIONAL DISTRESS [None]
  - ABDOMINAL PAIN UPPER [None]
